FAERS Safety Report 11023092 (Version 1)
Quarter: 2015Q2

REPORT INFORMATION
  Report Type: Spontaneous
  Country: US (occurrence: US)
  Receive Date: 20150413
  Receipt Date: 20150413
  Transmission Date: 20150821
  Serious: No
  Sender: FDA-Public Use
  Company Number: US-BAYER-2015-123656

PATIENT
  Sex: Female

DRUGS (2)
  1. MIDOL [Suspect]
     Active Substance: IBUPROFEN
     Dosage: 6 DF, ONCE
     Dates: start: 20150408, end: 20150408
  2. MIDOL [Suspect]
     Active Substance: IBUPROFEN
     Dosage: UNK
     Route: 048

REACTIONS (3)
  - Tremor [Not Recovered/Not Resolved]
  - Visual impairment [Not Recovered/Not Resolved]
  - Incorrect dose administered [None]

NARRATIVE: CASE EVENT DATE: 20150408
